FAERS Safety Report 6794762-6 (Version None)
Quarter: 2010Q2

REPORT INFORMATION
  Report Type: 
  Country: None (occurrence: None)
  Receive Date: 20100624
  Receipt Date: 20100624
  Transmission Date: 20101027
  Serious: Yes (Other)
  Sender: FDA-Public Use
  Company Number: None

PATIENT
  Sex: Female

DRUGS (1)
  1. ULTRAVIST 370 [Suspect]
     Indication: ABDOMINAL PAIN
     Dosage: 99ML 1 IV
     Route: 042
     Dates: start: 20100506

REACTIONS (1)
  - INJECTION SITE URTICARIA [None]
